FAERS Safety Report 9549604 (Version 8)
Quarter: 2014Q2

REPORT INFORMATION
  Report Type: Report from Study
  Country: CA (occurrence: CA)
  Receive Date: 20130924
  Receipt Date: 20140627
  Transmission Date: 20141212
  Serious: Yes (Other)
  Sender: FDA-Public Use
  Company Number: CA-ROCHE-1262986

PATIENT
  Age: 63 Year
  Sex: Female
  Weight: 65.8 kg

DRUGS (11)
  1. RITUXAN [Suspect]
     Indication: PEMPHIGUS
     Dosage: MOST RECENT DOSE OF RITUXIMAB INFUSION WAS GIVEN ON 12/FEB/2014
     Route: 042
     Dates: start: 20110907
  2. DIPHENHYDRAMINE HYDROCHLORIDE [Concomitant]
     Route: 048
     Dates: start: 20110907
  3. ACETAMINOPHEN [Concomitant]
     Route: 048
     Dates: start: 20110907
  4. METHYLPREDNISOLONE [Concomitant]
     Indication: PREMEDICATION
     Route: 042
     Dates: start: 20110907
  5. BENADRYL (CANADA) [Concomitant]
     Route: 048
     Dates: start: 20110907
  6. PREDNISONE [Concomitant]
  7. HERBAL PILLS [Concomitant]
     Indication: MENOPAUSE
  8. VITAMIN C [Concomitant]
  9. VITAMIN B12 [Concomitant]
  10. TYLENOL [Concomitant]
     Indication: PREMEDICATION
     Route: 048
     Dates: start: 20110907
  11. REACTINE (CANADA) [Concomitant]

REACTIONS (11)
  - Axillary mass [Not Recovered/Not Resolved]
  - Pneumonia [Unknown]
  - Mycobacterium avium complex infection [Not Recovered/Not Resolved]
  - Weight decreased [Not Recovered/Not Resolved]
  - Musculoskeletal stiffness [Recovering/Resolving]
  - Blood pressure diastolic decreased [Unknown]
  - Infusion related reaction [Recovered/Resolved]
  - Arthralgia [Recovering/Resolving]
  - Rash [Recovered/Resolved]
  - Off label use [Unknown]
  - Gastrooesophageal reflux disease [Not Recovered/Not Resolved]
